FAERS Safety Report 11806856 (Version 2)
Quarter: 2015Q4

REPORT INFORMATION
  Report Type: Spontaneous
  Country: JP (occurrence: JP)
  Receive Date: 20151207
  Receipt Date: 20151222
  Transmission Date: 20160305
  Serious: Yes (Death)
  Sender: FDA-Public Use
  Company Number: JP-GE HEALTHCARE MEDICAL DIAGNOSTICS-OMPQ-PR-1511S-3011

PATIENT
  Age: 47 Year
  Sex: Female
  Weight: 78 kg

DRUGS (18)
  1. OMNIPAQUE [Suspect]
     Active Substance: IOHEXOL
     Indication: SHUNT STENOSIS
     Route: 042
     Dates: start: 20151110, end: 20151110
  2. UBRETID [Concomitant]
     Active Substance: DISTIGMINE BROMIDE
  3. GASMOTIN [Concomitant]
     Active Substance: MOSAPRIDE CITRATE
  4. POLARAMINE [Concomitant]
     Active Substance: DEXCHLORPHENIRAMINE MALEATE
  5. RIONA [Concomitant]
     Active Substance: FERRIC CITRATE ANHYDROUS
  6. DAIKENCHUTO [Concomitant]
     Active Substance: HERBALS
     Dates: end: 20151110
  7. LANSOPRAZOLE. [Concomitant]
     Active Substance: LANSOPRAZOLE
     Dates: end: 20151110
  8. REGPARA [Concomitant]
     Active Substance: CINACALCET HYDROCHLORIDE
  9. OMNIPAQUE [Suspect]
     Active Substance: IOHEXOL
     Indication: DIAGNOSTIC PROCEDURE
  10. SENNARIDE [Concomitant]
     Active Substance: SENNOSIDES A AND B
     Dates: end: 20151110
  11. YOUPATCH [Concomitant]
  12. HUMALOG MIX [Concomitant]
     Active Substance: INSULIN LISPRO
  13. ALLELOCK [Concomitant]
     Active Substance: OLOPATADINE HYDROCHLORIDE
     Dates: end: 20151110
  14. CALTAN [Concomitant]
     Active Substance: CALCIUM CARBONATE
  15. TAURINE [Concomitant]
     Active Substance: TAURINE
     Route: 048
  16. VEMAS [Concomitant]
     Active Substance: CASANTHRANOL\DOCUSATE SODIUM
  17. TRAZENTA [Concomitant]
     Active Substance: LINAGLIPTIN
  18. BAYASPIRIN [Concomitant]
     Active Substance: ASPIRIN

REACTIONS (4)
  - Respiratory arrest [Fatal]
  - Shock [Fatal]
  - Blood pressure decreased [Fatal]
  - Cardiac arrest [Fatal]

NARRATIVE: CASE EVENT DATE: 20151110
